FAERS Safety Report 9334815 (Version 1)
Quarter: 2013Q2

REPORT INFORMATION
  Report Type: Spontaneous
  Country: US (occurrence: US)
  Receive Date: 20130606
  Receipt Date: 20130606
  Transmission Date: 20140414
  Serious: No
  Sender: FDA-Public Use
  Company Number: US-AMGEN-USASP2013023251

PATIENT
  Age: 63 Year
  Sex: Female
  Weight: 76.64 kg

DRUGS (4)
  1. PROLIA [Suspect]
     Indication: OSTEOPOROSIS POSTMENOPAUSAL
     Dosage: UNK
     Route: 030
     Dates: start: 20130327
  2. VITAMIN D                          /00107901/ [Concomitant]
  3. CALCIUM [Concomitant]
  4. LEVOXYL [Concomitant]
     Dosage: UNK
     Dates: start: 201212

REACTIONS (4)
  - Acne [Unknown]
  - Dry skin [Unknown]
  - Skin irritation [Unknown]
  - Rash [Unknown]
